FAERS Safety Report 16557300 (Version 1)
Quarter: 2019Q3

REPORT INFORMATION
  Report Type: Spontaneous
  Country: BE (occurrence: BE)
  Receive Date: 20190711
  Receipt Date: 20190711
  Transmission Date: 20191004
  Serious: Yes (Other)
  Sender: FDA-Public Use
  Company Number: BE-PFIZER INC-2019290681

PATIENT
  Sex: Female

DRUGS (1)
  1. DALACIN C [Suspect]
     Active Substance: CLINDAMYCIN PHOSPHATE
     Dosage: 150 MG, UNK
     Route: 048

REACTIONS (2)
  - Localised oedema [Unknown]
  - Dyspnoea [Unknown]
